FAERS Safety Report 5025682-5 (Version None)
Quarter: 2006Q2

REPORT INFORMATION
  Report Type: 
  Country: None (occurrence: None)
  Receive Date: 20060614
  Receipt Date: 20060531
  Transmission Date: 20061013
  Serious: Yes (Other)
  Sender: FDA-Public Use
  Company Number: US-KINGPHARMUSA00001-K200600711

PATIENT
  Age: 19 Year
  Sex: Female
  Weight: 52 kg

DRUGS (7)
  1. APLISOL [Suspect]
     Indication: TUBERCULIN TEST
     Dosage: .1 ML, SINGLE
     Route: 023
     Dates: start: 20060530, end: 20060530
  2. ZYRTEC [Concomitant]
  3. CLARITIN [Concomitant]
  4. SINGULAIR [Concomitant]
  5. ZANTAC [Concomitant]
  6. ALBUTEROL [Concomitant]
  7. PULMICORT [Concomitant]

REACTIONS (5)
  - DIZZINESS [None]
  - HEART RATE INCREASED [None]
  - HYPERSENSITIVITY [None]
  - STRIDOR [None]
  - THROAT TIGHTNESS [None]
